FAERS Safety Report 25941240 (Version 1)
Quarter: 2025Q4

REPORT INFORMATION
  Report Type: Spontaneous
  Country: CN (occurrence: CN)
  Receive Date: 20251020
  Receipt Date: 20251020
  Transmission Date: 20260118
  Serious: Yes (Life-Threatening, Hospitalization, Other)
  Sender: DAIICHI
  Company Number: CN-DSJP-DS-2025-170404-CN

PATIENT
  Age: 59 Year
  Sex: Female
  Weight: 48.7 kg

DRUGS (3)
  1. ENHERTU [Suspect]
     Active Substance: FAM-TRASTUZUMAB DERUXTECAN-NXKI
     Indication: Breast cancer
     Dosage: 263 MG, ONCE EVERY 3 WK
     Route: 041
     Dates: start: 20250926, end: 20250926
  2. STERILE WATER [Concomitant]
     Active Substance: WATER
     Indication: Breast cancer
     Dosage: 14 ML, ONCE EVERY 3 WK
     Route: 041
     Dates: start: 20250926, end: 20250926
  3. DEXTROSE [Concomitant]
     Active Substance: DEXTROSE MONOHYDRATE
     Indication: Breast cancer
     Dosage: 250 ML, ONCE EVERY 3 WK
     Route: 041
     Dates: start: 20250926, end: 20250926

REACTIONS (4)
  - Platelet count decreased [Recovering/Resolving]
  - Myelosuppression [Unknown]
  - White blood cell count decreased [Unknown]
  - Neutrophil count decreased [Unknown]

NARRATIVE: CASE EVENT DATE: 20251002
